FAERS Safety Report 7371741-1 (Version None)
Quarter: 2011Q1

REPORT INFORMATION
  Report Type: 
  Country: None (occurrence: None)
  Receive Date: 20110324
  Receipt Date: 20110321
  Transmission Date: 20110831
  Serious: Yes (Death, Hospitalization)
  Sender: FDA-Public Use
  Company Number: AU-SANOFI-AVENTIS-2011SA008181

PATIENT
  Age: 79 Year
  Sex: Male

DRUGS (13)
  1. PREDNISOLONE [Concomitant]
     Indication: PROSTATE CANCER
     Route: 048
     Dates: start: 20100729
  2. RAMIPRIL [Concomitant]
  3. MAXOLON [Concomitant]
  4. BUDESONIDE/FORMOTEROL [Concomitant]
  5. NEXIUM [Concomitant]
  6. TRAMADOL [Concomitant]
  7. DI-GESIC [Concomitant]
  8. INVESTIGATIONAL DRUG [Concomitant]
     Indication: PROSTATE CANCER
     Route: 048
     Dates: start: 20100729
  9. PANADOL [Concomitant]
  10. STEMETIL [Concomitant]
  11. TAXOTERE [Suspect]
     Indication: PROSTATE CANCER
     Route: 051
     Dates: start: 20100729, end: 20100729
  12. TILADE [Concomitant]
  13. MOBIC [Concomitant]

REACTIONS (1)
  - PSEUDOMONAL SEPSIS [None]
